FAERS Safety Report 7949635-X (Version None)
Quarter: 2011Q4

REPORT INFORMATION
  Report Type: 
  Country: None (occurrence: None)
  Receive Date: 20111130
  Receipt Date: 20111128
  Transmission Date: 20120403
  Serious: Yes (Life-Threatening, Other)
  Sender: FDA-Public Use
  Company Number: CA-PFIZER INC-2011289751

PATIENT
  Sex: Female

DRUGS (2)
  1. MORPHINE SULFATE [Suspect]
     Indication: CAESAREAN SECTION
     Dosage: 2 MG, SINGLE
     Route: 058
  2. MORPHINE SULFATE [Suspect]
     Route: 037

REACTIONS (1)
  - RESPIRATORY DEPRESSION [None]
